FAERS Safety Report 19425078 (Version 1)
Quarter: 2021Q2

REPORT INFORMATION
  Report Type: Spontaneous
  Country: US (occurrence: US)
  Receive Date: 20210616
  Receipt Date: 20210616
  Transmission Date: 20210717
  Serious: No
  Sender: FDA-Public Use
  Company Number: US-CELGENEUS-USA-20210602036

PATIENT
  Sex: Male

DRUGS (21)
  1. REVLIMID [Suspect]
     Active Substance: LENALIDOMIDE
     Dosage: 25 MILLIGRAM
     Route: 048
     Dates: start: 20201118
  2. DOXYCYCLINE. [Concomitant]
     Active Substance: DOXYCYCLINE
     Route: 048
     Dates: start: 202102
  3. METOPROLOL ER SUCCINATE [Concomitant]
     Active Substance: METOPROLOL SUCCINATE
     Indication: PRODUCT USED FOR UNKNOWN INDICATION
     Route: 048
  4. NYSTATIN M?DRYL LIDO/HYDROCORTI/H20 [Concomitant]
     Indication: ORAL PAIN
     Dosage: 20 MILLILITER, SWISH AND SWALLOW
     Route: 048
     Dates: start: 202106
  5. ACYCLOVIR. [Concomitant]
     Active Substance: ACYCLOVIR
     Route: 048
  6. OXYCODONE ACETAMINOPHEN [Concomitant]
     Active Substance: ACETAMINOPHEN\OXYCODONE HYDROCHLORIDE
     Dosage: 5?325 MG?EVERY 4?6 HOURS AS NEEDED
     Route: 048
     Dates: start: 201912
  7. BENZONATATE. [Concomitant]
     Active Substance: BENZONATATE
     Indication: COUGH
     Dosage: 300 MILLIGRAM
     Route: 048
     Dates: start: 202011
  8. DOXYCYCLINE. [Concomitant]
     Active Substance: DOXYCYCLINE
     Indication: PRODUCT USED FOR UNKNOWN INDICATION
     Dosage: 200 MILLIGRAM
     Route: 048
     Dates: start: 202011
  9. NYSTATIN. [Concomitant]
     Active Substance: NYSTATIN
     Dosage: 100000 U/ML?1 ML BY MOUTH IN EACH CHEEK
     Route: 048
     Dates: start: 202103
  10. POTASSIUM CL [Concomitant]
     Active Substance: POTASSIUM CHLORIDE
     Indication: PRODUCT USED FOR UNKNOWN INDICATION
     Route: 048
  11. AMOX?CLAV [Concomitant]
     Active Substance: AMOXICILLIN\CLAVULANATE POTASSIUM
     Indication: PRODUCT USED FOR UNKNOWN INDICATION
     Dosage: 1750 MILLIGRAM
     Route: 048
     Dates: start: 202102
  12. DEXAMETHASONE. [Concomitant]
     Active Substance: DEXAMETHASONE
     Dosage: EVERY OTHER WEEK
     Route: 048
     Dates: start: 202101
  13. GABAPENTIN. [Concomitant]
     Active Substance: GABAPENTIN
     Indication: PRODUCT USED FOR UNKNOWN INDICATION
     Route: 048
  14. REVLIMID [Suspect]
     Active Substance: LENALIDOMIDE
     Indication: PLASMA CELL MYELOMA
     Dosage: 10 MILLIGRAM
     Route: 048
     Dates: start: 201903
  15. NYSTATIN. [Concomitant]
     Active Substance: NYSTATIN
     Indication: PRODUCT USED FOR UNKNOWN INDICATION
     Dosage: 100000 U/ML?1 ML BY MOUTH IN EACH CHEEK
     Route: 048
     Dates: start: 202104
  16. OXYCODONE ACETAMINOPHEN [Concomitant]
     Active Substance: ACETAMINOPHEN\OXYCODONE HYDROCHLORIDE
     Dosage: 5?325 MG?EVERY 4?6 HOURS AS NEEDED
     Route: 048
     Dates: start: 202002
  17. OXYCODONE ACETAMINOPHEN [Concomitant]
     Active Substance: ACETAMINOPHEN\OXYCODONE HYDROCHLORIDE
     Dosage: 5?325 MG?EVERY 4?6 HOURS AS NEEDED
     Route: 048
     Dates: start: 202004
  18. ACYCLOVIR. [Concomitant]
     Active Substance: ACYCLOVIR
     Indication: PRODUCT USED FOR UNKNOWN INDICATION
     Dosage: 800 MILLIGRAM
     Route: 048
     Dates: start: 202012
  19. DEXAMETHASONE. [Concomitant]
     Active Substance: DEXAMETHASONE
     Indication: PRODUCT USED FOR UNKNOWN INDICATION
     Route: 048
     Dates: start: 202104
  20. OXYCODONE ACETAMINOPHEN [Concomitant]
     Active Substance: ACETAMINOPHEN\OXYCODONE HYDROCHLORIDE
     Indication: PAIN
     Dosage: 5?325 MG?EVERY 4?6 HOURS AS NEEDED
     Route: 048
     Dates: start: 202009
  21. OXYCODONE ACETAMINOPHEN [Concomitant]
     Active Substance: ACETAMINOPHEN\OXYCODONE HYDROCHLORIDE
     Dosage: 5?325 MG?EVERY 4?6 HOURS AS NEEDED
     Route: 048
     Dates: start: 202103

REACTIONS (2)
  - Weight decreased [Recovering/Resolving]
  - Oral candidiasis [Recovering/Resolving]

NARRATIVE: CASE EVENT DATE: 2021
